FAERS Safety Report 10362941 (Version 2)
Quarter: 2014Q3

REPORT INFORMATION
  Report Type: Spontaneous
  Country: IT (occurrence: None)
  Receive Date: 20140731
  Receipt Date: 20140910
  Transmission Date: 20150326
  Serious: Yes (Hospitalization)
  Sender: FDA-Public Use
  Company Number: 2014-IT-009042

PATIENT
  Age: 12 Year
  Sex: Male

DRUGS (9)
  1. CYTARABINE. [Concomitant]
     Active Substance: CYTARABINE
  2. CYTARABINE. [Concomitant]
     Active Substance: CYTARABINE
  3. ETOPOSIDE (ETOPOSIDE PHOSPHATE) [Concomitant]
     Active Substance: ETOPOSIDE
  4. IMATINIB [Concomitant]
     Active Substance: IMATINIB
  5. IMATINIB [Concomitant]
     Active Substance: IMATINIB
  6. METHOTREXATE (METHOTREXATE SODIUM) [Concomitant]
     Active Substance: METHOTREXATE SODIUM
  7. DEXAMETHASONE. [Concomitant]
     Active Substance: DEXAMETHASONE
  8. PREDNISONE ACETATE [Concomitant]
     Active Substance: PREDNISONE ACETATE
  9. ERWINASE (ASPARAGINASE ERWINIA CHRYSANTHEMI) INJECTION [Suspect]
     Active Substance: ASPARAGINASE ERWINIA CHRYSANTHEMI
     Indication: ACUTE LYMPHOCYTIC LEUKAEMIA
     Dosage: 25000 U, DAY 3 AND 5, INTRAVENOUS
     Route: 042

REACTIONS (6)
  - Scratch [None]
  - Vomiting [None]
  - Abdominal pain [None]
  - Prurigo [None]
  - Hypersensitivity [None]
  - Rash erythematous [None]
